FAERS Safety Report 6878166-3 (Version None)
Quarter: 2010Q2

REPORT INFORMATION
  Report Type: 
  Country: None (occurrence: None)
  Receive Date: 20100623
  Receipt Date: 20081223
  Transmission Date: 20101027
  Serious: No
  Sender: FDA-Public Use
  Company Number: 2008-00159

PATIENT
  Age: 30 Year
  Sex: Female
  Weight: 61.2356 kg

DRUGS (2)
  1. ZICAM EXTREME CONGESTION RELIEF [Suspect]
     Dosage: BID X 5 DAYS
     Dates: start: 20081218, end: 20081223
  2. ACETAMINOPHEN [Concomitant]

REACTIONS (1)
  - ANOSMIA [None]
